FAERS Safety Report 10024570 (Version 1)
Quarter: 2014Q1

REPORT INFORMATION
  Report Type: Spontaneous
  Country: CO (occurrence: CO)
  Receive Date: 20140320
  Receipt Date: 20140320
  Transmission Date: 20141002
  Serious: Yes (Death)
  Sender: FDA-Public Use
  Company Number: PHHY2014CO033375

PATIENT
  Sex: Male

DRUGS (1)
  1. NEORAL [Suspect]
     Indication: TRANSPLANT
     Dosage: 50 MG, UNK
     Route: 048

REACTIONS (1)
  - Death [Fatal]
